FAERS Safety Report 18847230 (Version 1)
Quarter: 2021Q1

REPORT INFORMATION
  Report Type: Report from Study
  Country: US (occurrence: US)
  Receive Date: 20210203
  Receipt Date: 20210203
  Transmission Date: 20210419
  Serious: No
  Sender: FDA-Public Use
  Company Number: US-EXELIXIS-CABO-20032020

PATIENT
  Sex: Male

DRUGS (3)
  1. TECENTRIQ [Concomitant]
     Active Substance: ATEZOLIZUMAB
     Dosage: UNK
  2. COMETRIQ [Suspect]
     Active Substance: CABOZANTINIB S-MALATE
     Indication: PROSTATE CANCER METASTATIC
     Dosage: 60 MG, QD
     Dates: start: 20200727
  3. COMETRIQ [Suspect]
     Active Substance: CABOZANTINIB S-MALATE
     Indication: METASTASES TO LYMPH NODES
     Dosage: 20 MG

REACTIONS (9)
  - Back pain [Not Recovered/Not Resolved]
  - Headache [Not Recovered/Not Resolved]
  - Diarrhoea [Not Recovered/Not Resolved]
  - Eye pain [Recovering/Resolving]
  - Decreased appetite [Not Recovered/Not Resolved]
  - Neck pain [Not Recovered/Not Resolved]
  - Fatigue [Not Recovered/Not Resolved]
  - Flatulence [Not Recovered/Not Resolved]
  - Off label use [Unknown]
